FAERS Safety Report 7318871-8 (Version None)
Quarter: 2011Q1

REPORT INFORMATION
  Report Type: 
  Country: None (occurrence: None)
  Receive Date: 20110228
  Receipt Date: 20101220
  Transmission Date: 20110831
  Serious: No
  Sender: FDA-Public Use
  Company Number: A0900630A

PATIENT
  Age: 35 Year
  Sex: Female

DRUGS (5)
  1. GABAPENTIN [Concomitant]
  2. VERAPAMIL [Concomitant]
  3. TOPAMAX [Concomitant]
  4. IMITREX [Suspect]
     Indication: MIGRAINE
     Dosage: 1APP SINGLE DOSE
     Route: 058
     Dates: start: 20070101
  5. FLUOXETINE HCL [Concomitant]

REACTIONS (5)
  - ANXIETY [None]
  - BURNING SENSATION [None]
  - CHEST DISCOMFORT [None]
  - THROAT TIGHTNESS [None]
  - SPIDER VEIN [None]
